FAERS Safety Report 16072479 (Version 2)
Quarter: 2020Q2

REPORT INFORMATION
  Report Type: Spontaneous
  Country: US (occurrence: US)
  Receive Date: 20190314
  Receipt Date: 20200601
  Transmission Date: 20200713
  Serious: No
  Sender: FDA-Public Use
  Company Number: US-ELI_LILLY_AND_COMPANY-US201903004347

PATIENT
  Age: 53 Year
  Sex: Female

DRUGS (5)
  1. HUMALOG [Suspect]
     Active Substance: INSULIN LISPRO
     Indication: TYPE 2 DIABETES MELLITUS
     Dosage: 3 U, TID (SLIDING SCALE DEPENDING ON SUGAR LEVEL)
     Route: 058
     Dates: start: 2017
  2. HUMALOG [Suspect]
     Active Substance: INSULIN LISPRO
     Indication: TYPE 2 DIABETES MELLITUS
     Dosage: 3 U, TID (SLIDING SCALE DEPENDING ON SUGAR LEVEL)
     Route: 058
     Dates: start: 2017
  3. HUMALOG [Suspect]
     Active Substance: INSULIN LISPRO
     Dosage: 3 U, TID (SLIDING SCALE DEPENDING ON SUGAR LEVEL)
     Route: 058
  4. TRESIBA [Concomitant]
     Active Substance: INSULIN DEGLUDEC
     Indication: TYPE 2 DIABETES MELLITUS
  5. HUMALOG [Suspect]
     Active Substance: INSULIN LISPRO
     Dosage: 3 U, TID (SLIDING SCALE DEPENDING ON SUGAR LEVEL)
     Route: 058

REACTIONS (4)
  - Muscle spasms [Recovered/Resolved]
  - Blood glucose increased [Recovered/Resolved]
  - Pain in extremity [Unknown]
  - Product dose omission [Recovered/Resolved]

NARRATIVE: CASE EVENT DATE: 20190307
